FAERS Safety Report 4901488-X (Version None)
Quarter: 2006Q1

REPORT INFORMATION
  Report Type: 
  Country: None (occurrence: None)
  Receive Date: 20060206
  Receipt Date: 20060126
  Transmission Date: 20060701
  Serious: Yes (Other)
  Sender: FDA-Public Use
  Company Number: US-AVENTIS-200610938US

PATIENT
  Sex: Male
  Weight: 77.27 kg

DRUGS (8)
  1. LANTUS [Suspect]
     Indication: DIABETES MELLITUS NON-INSULIN-DEPENDENT
     Dates: start: 20020101
  2. GLIMEPIRIDE [Concomitant]
     Dosage: DOSE: 4 MG ONE AT BREAKFAST AND ONE AT DINNER
  3. PRIMROSE OIL [Concomitant]
     Indication: NEUROPATHY
  4. ALTACE [Concomitant]
  5. ASPIRIN [Concomitant]
  6. TORSEMIDE [Concomitant]
     Dosage: DOSE: 10 MG  QMON. AND QFRI.
  7. LIPITOR [Concomitant]
     Indication: HYPERCHOLESTEROLAEMIA
  8. VITAMIN D [Concomitant]
     Indication: BONE DISORDER
     Dosage: DOSE: 50,000

REACTIONS (6)
  - ASTHENIA [None]
  - BLOOD GLUCOSE INCREASED [None]
  - CARDIAC VALVE DISEASE [None]
  - CEREBROVASCULAR ACCIDENT [None]
  - DEPRESSED LEVEL OF CONSCIOUSNESS [None]
  - TREMOR [None]
